FAERS Safety Report 15555571 (Version 1)
Quarter: 2018Q4

REPORT INFORMATION
  Report Type: Report from Study
  Country: IT (occurrence: IT)
  Receive Date: 20181026
  Receipt Date: 20181026
  Transmission Date: 20190205
  Serious: Yes (Other)
  Sender: FDA-Public Use
  Company Number: IT-JNJFOC-20181024184

PATIENT
  Sex: Female

DRUGS (3)
  1. DEXAMETHASONE. [Concomitant]
     Active Substance: DEXAMETHASONE
     Indication: PREMEDICATION
     Route: 042
  2. DEXAMETHASONE. [Concomitant]
     Active Substance: DEXAMETHASONE
     Indication: PREMEDICATION
     Route: 048
  3. TRABECTEDIN [Suspect]
     Active Substance: TRABECTEDIN
     Indication: UTERINE LEIOMYOSARCOMA
     Route: 042

REACTIONS (1)
  - Jugular vein thrombosis [Unknown]
